FAERS Safety Report 10282098 (Version 2)
Quarter: 2014Q3

REPORT INFORMATION
  Report Type: Spontaneous
  Country: FR (occurrence: FR)
  Receive Date: 20140707
  Receipt Date: 20140707
  Transmission Date: 20150326
  Serious: Yes (Other)
  Sender: FDA-Public Use
  Company Number: FR-ACTAVIS-2014-13722

PATIENT
  Age: 62 Year
  Sex: Female

DRUGS (1)
  1. CEFUROXIME SODIUM (UNKNOWN) [Suspect]
     Active Substance: CEFUROXIME SODIUM
     Indication: ANTIBIOTIC PROPHYLAXIS
     Dosage: DOSE UNKNOWN, CONCENTRATION 1 MG/0.1 ML, TOTAL
     Route: 031

REACTIONS (4)
  - Macular oedema [Recovering/Resolving]
  - Off label use [Recovering/Resolving]
  - Retinal detachment [Recovering/Resolving]
  - Accidental overdose [Recovering/Resolving]
